FAERS Safety Report 9788746 (Version 1)
Quarter: 2013Q4

REPORT INFORMATION
  Report Type: Spontaneous
  Country: US (occurrence: US)
  Receive Date: 20131230
  Receipt Date: 20131230
  Transmission Date: 20140711
  Serious: Yes (Life-Threatening, Other)
  Sender: FDA-Public Use
  Company Number: US-TEVA-453465USA

PATIENT
  Age: 27 Year
  Sex: Female

DRUGS (35)
  1. PROPOFOL [Suspect]
     Indication: STATUS EPILEPTICUS
     Dosage: 50 MICROG/KG/MIN
     Route: 050
  2. PROPOFOL [Suspect]
     Indication: STATUS EPILEPTICUS
     Route: 065
  3. PHENYTOIN [Suspect]
     Indication: STATUS EPILEPTICUS
     Dosage: 750MG LOADING DOSE
     Route: 042
  4. PHENYTOIN [Suspect]
     Indication: STATUS EPILEPTICUS
     Route: 042
  5. PHENYTOIN [Suspect]
     Indication: STATUS EPILEPTICUS
     Dosage: 750MG
     Route: 040
  6. PHENOBARBITAL [Suspect]
     Indication: STATUS EPILEPTICUS
     Dosage: 1000MG
     Route: 042
  7. PHENOBARBITAL [Suspect]
     Indication: STATUS EPILEPTICUS
     Dosage: 20 MG/KG LOADING DOSE
     Route: 042
  8. PHENOBARBITAL [Suspect]
     Indication: STATUS EPILEPTICUS
     Route: 042
  9. PENTOBARBITAL [Suspect]
     Indication: STATUS EPILEPTICUS
     Dosage: MAXIMUM DOSE 8 MG/KG/H
     Route: 050
  10. PENTOBARBITAL [Suspect]
     Indication: STATUS EPILEPTICUS
     Dosage: 0.75 MG/KG/H
     Route: 050
  11. LORAZEPAM [Concomitant]
     Indication: STATUS EPILEPTICUS
     Dosage: 2MG
     Route: 042
  12. LEVETIRACETAM [Concomitant]
     Indication: STATUS EPILEPTICUS
     Route: 042
  13. LEVETIRACETAM [Concomitant]
     Indication: STATUS EPILEPTICUS
     Route: 042
  14. MIDAZOLAM [Concomitant]
     Indication: STATUS EPILEPTICUS
     Dosage: 5MG PUSHES
     Route: 040
  15. MIDAZOLAM [Concomitant]
     Indication: STATUS EPILEPTICUS
     Dosage: CONTINUOUS; MAXIMUM 100 MG/H
     Route: 041
  16. MIDAZOLAM [Concomitant]
     Indication: STATUS EPILEPTICUS
     Dosage: 10 MG/H
     Route: 041
  17. LACOSAMIDE [Concomitant]
     Indication: STATUS EPILEPTICUS
     Route: 042
  18. VANCOMYCIN [Concomitant]
     Indication: MENINGITIS
     Dosage: 1000MG STAT
     Route: 065
  19. CEFTRIAXONE [Concomitant]
     Indication: MENINGITIS
     Dosage: 2G STAT
     Route: 065
  20. ACICLOVIR [Concomitant]
     Indication: MENINGITIS
     Dosage: 500MG STAT
     Route: 065
  21. ACICLOVIR [Concomitant]
     Indication: MENINGITIS
     Route: 042
  22. AMPICILLIN [Concomitant]
     Indication: MENINGITIS
     Route: 065
  23. PIPERACILLIN, TAZOBACTAM [Concomitant]
     Indication: PNEUMONIA
     Route: 050
  24. CEFEPIME [Concomitant]
     Indication: PNEUMONIA
     Route: 065
  25. METHYLPREDNISOLONE [Concomitant]
     Route: 065
  26. TOPIRAMATE [Concomitant]
     Indication: STATUS EPILEPTICUS
     Route: 065
  27. COTRIMOXAZOLE [Concomitant]
     Indication: PNEUMONIA
     Dosage: 15 MG/KG/DAY
     Route: 042
  28. VASOPRESSIN [Concomitant]
     Indication: DIABETES INSIPIDUS
     Route: 065
  29. VALPROIC ACID [Concomitant]
     Indication: STATUS EPILEPTICUS
     Dosage: 15 MG/KG LOADING DOSE
     Route: 065
  30. VALPROIC ACID [Concomitant]
     Indication: STATUS EPILEPTICUS
     Route: 042
  31. VALPROIC ACID [Concomitant]
     Indication: STATUS EPILEPTICUS
     Route: 042
  32. IMMUNE GLOBULIN [Concomitant]
     Indication: ENCEPHALITIS AUTOIMMUNE
     Route: 042
  33. KETAMINE [Concomitant]
     Indication: STATUS EPILEPTICUS
     Dosage: 1.5 MG/KG LOADING DOSE
     Route: 065
  34. KETAMINE [Concomitant]
     Indication: STATUS EPILEPTICUS
     Dosage: 1.2 MG/KG/H
     Route: 050
  35. KETAMINE [Concomitant]
     Indication: STATUS EPILEPTICUS
     Dosage: MAXIMUM 3.75 MG/KG/H
     Route: 050

REACTIONS (4)
  - Type IV hypersensitivity reaction [Recovering/Resolving]
  - Ileus [Recovering/Resolving]
  - Hypotension [Unknown]
  - Anticonvulsant drug level below therapeutic [Unknown]
